FAERS Safety Report 14003426 (Version 2)
Quarter: 2017Q4

REPORT INFORMATION
  Report Type: Spontaneous
  Country: GB (occurrence: GB)
  Receive Date: 20170922
  Receipt Date: 20171110
  Transmission Date: 20180321
  Serious: Yes (Death, Other)
  Sender: FDA-Public Use
  Company Number: GB-INTERNATIONAL MEDICATION SYSTEMS, LIMITED-2027449

PATIENT
  Age: 44 Year
  Sex: Female

DRUGS (4)
  1. PREGABALIN. [Suspect]
     Active Substance: PREGABALIN
     Route: 065
  2. MORPHINE [Suspect]
     Active Substance: MORPHINE
     Indication: PRODUCT USED FOR UNKNOWN INDICATION
     Route: 065
  3. COCODAMOL [Suspect]
     Active Substance: ACETAMINOPHEN\CODEINE PHOSPHATE
     Route: 048
  4. ZOPICLONE [Suspect]
     Active Substance: ZOPICLONE
     Route: 048

REACTIONS (9)
  - Vision blurred [Fatal]
  - Toxicity to various agents [Fatal]
  - Accidental overdose [Fatal]
  - Prescription drug used without a prescription [Fatal]
  - Gait disturbance [Fatal]
  - Death [Fatal]
  - Dysarthria [Fatal]
  - Drug abuse [Fatal]
  - Eye pain [Fatal]

NARRATIVE: CASE EVENT DATE: 20161015
